FAERS Safety Report 16912450 (Version 1)
Quarter: 2019Q4

REPORT INFORMATION
  Report Type: Spontaneous
  Country: ES (occurrence: ES)
  Receive Date: 20191014
  Receipt Date: 20191014
  Transmission Date: 20200122
  Serious: Yes (Other)
  Sender: FDA-Public Use
  Company Number: ES-SUN PHARMACEUTICAL INDUSTRIES LTD-2019RR-223499

PATIENT
  Age: 9 Year
  Sex: Female
  Weight: 25.5 kg

DRUGS (1)
  1. LORATADINE. [Suspect]
     Active Substance: LORATADINE
     Indication: ALLERGY TO ARTHROPOD STING
     Dosage: 10 MILLIGRAM, DAILY
     Route: 048
     Dates: start: 20190821, end: 20190822

REACTIONS (3)
  - Tachycardia [Recovered/Resolved]
  - Nausea [Recovered/Resolved]
  - Malaise [Recovered/Resolved]

NARRATIVE: CASE EVENT DATE: 20190821
